FAERS Safety Report 9013991 (Version 1)
Quarter: 2013Q1

REPORT INFORMATION
  Report Type: Spontaneous
  Country: FR (occurrence: FR)
  Receive Date: 20130115
  Receipt Date: 20130115
  Transmission Date: 20140127
  Serious: Yes (Hospitalization)
  Sender: FDA-Public Use
  Company Number: FR-ROCHE-1179453

PATIENT
  Age: 48 Year
  Sex: Male

DRUGS (7)
  1. ROVALCYTE [Suspect]
     Indication: PRODUCT USED FOR UNKNOWN INDICATION
     Route: 048
     Dates: start: 20121122
  2. CELLCEPT [Concomitant]
     Route: 048
  3. LYRICA [Concomitant]
     Route: 048
  4. ADVAGRAF [Concomitant]
     Route: 048
  5. ATARAX [Concomitant]
     Route: 048
  6. CARDENSIEL [Concomitant]
     Route: 048
  7. INEXIUM [Concomitant]
     Route: 048

REACTIONS (2)
  - Delirium [Recovering/Resolving]
  - Mania [Recovering/Resolving]
